FAERS Safety Report 8904653 (Version 1)
Quarter: 2012Q4

REPORT INFORMATION
  Report Type: 
  Country: US (occurrence: US)
  Receive Date: 20121113
  Receipt Date: 20121113
  Transmission Date: 20130627
  Serious: Yes (Hospitalization)
  Sender: FDA-Public Use
  Company Number: US-GLAXOSMITHKLINE-A0946446A

PATIENT

DRUGS (2)
  1. COREG [Suspect]
     Indication: HYPERTENSION
     Dosage: 25MG Unknown
     Route: 048
  2. AMLODIPINE [Concomitant]

REACTIONS (1)
  - Bradycardia [Recovered/Resolved]
